FAERS Safety Report 14842855 (Version 1)
Quarter: 2018Q2

REPORT INFORMATION
  Report Type: Spontaneous
  Country: FI (occurrence: FI)
  Receive Date: 20180503
  Receipt Date: 20180503
  Transmission Date: 20180711
  Serious: Yes (Other)
  Sender: FDA-Public Use
  Company Number: FI-009507513-1803FIN009586

PATIENT
  Age: 70 Year
  Sex: Male

DRUGS (2)
  1. SINEMET [Suspect]
     Active Substance: CARBIDOPA\LEVODOPA
     Dosage: 4 DF, Q6H
     Route: 048
     Dates: start: 201803
  2. SINEMET [Suspect]
     Active Substance: CARBIDOPA\LEVODOPA
     Indication: PARKINSON^S DISEASE
     Dosage: 5 DF, Q6H
     Route: 048
     Dates: start: 201803

REACTIONS (3)
  - Drug prescribing error [Unknown]
  - Drug effect incomplete [Unknown]
  - Parkinson^s disease [Unknown]

NARRATIVE: CASE EVENT DATE: 2018
